FAERS Safety Report 12004627 (Version 3)
Quarter: 2016Q1

REPORT INFORMATION
  Report Type: Spontaneous
  Country: US (occurrence: US)
  Receive Date: 20160204
  Receipt Date: 20160218
  Transmission Date: 20160526
  Serious: Yes (Hospitalization)
  Sender: FDA-Public Use
  Company Number: US-HORIZON-RAV-0016-2016

PATIENT
  Age: 20 Year
  Sex: Female

DRUGS (2)
  1. CITRULLINE [Concomitant]
     Active Substance: CITRULLINE
     Indication: PRODUCT USED FOR UNKNOWN INDICATION
  2. RAVICTI [Suspect]
     Active Substance: GLYCEROL PHENYLBUTYRATE
     Indication: ORNITHINE TRANSCARBAMOYLASE DEFICIENCY
     Dosage: 5.8 ML THREE TIMES DAILY
     Dates: start: 20131104, end: 20160129

REACTIONS (6)
  - Abnormal behaviour [Unknown]
  - Aversion [Unknown]
  - Crying [Unknown]
  - Decreased appetite [Recovered/Resolved]
  - Hyperammonaemia [Recovered/Resolved]
  - Aggression [Unknown]

NARRATIVE: CASE EVENT DATE: 20160115
